FAERS Safety Report 25135540 (Version 1)
Quarter: 2025Q1

REPORT INFORMATION
  Report Type: Report from Study
  Country: US (occurrence: US)
  Receive Date: 20250328
  Receipt Date: 20250328
  Transmission Date: 20250409
  Serious: Yes (Other)
  Sender: ITALFARMACO SPA
  Company Number: US-ITALFARMACO SPA-2173843

PATIENT
  Age: 13 Year
  Sex: Male
  Weight: 55.09 kg

DRUGS (4)
  1. DUVYZAT [Suspect]
     Active Substance: GIVINOSTAT
     Indication: Duchenne muscular dystrophy
     Dates: start: 20241007
  2. LISINOPRIL [Concomitant]
     Active Substance: LISINOPRIL
  3. ROSALIN [Concomitant]
  4. FLUOXETINE [Concomitant]
     Active Substance: FLUOXETINE HYDROCHLORIDE

REACTIONS (1)
  - Femur fracture [Unknown]
